APPROVED DRUG PRODUCT: DIFLUCAN IN DEXTROSE 5% IN PLASTIC CONTAINER
Active Ingredient: FLUCONAZOLE
Strength: 200MG/100ML (2MG/ML)
Dosage Form/Route: INJECTABLE;INJECTION
Application: N019950 | Product #003
Applicant: PFIZER INC
Approved: Sep 29, 1992 | RLD: Yes | RS: No | Type: DISCN